FAERS Safety Report 7833414-8 (Version None)
Quarter: 2011Q4

REPORT INFORMATION
  Report Type: 
  Country: None (occurrence: None)
  Receive Date: 20111024
  Receipt Date: 20110916
  Transmission Date: 20120403
  Serious: No
  Sender: FDA-Public Use
  Company Number: US-ASTRAZENECA-2011SE56007

PATIENT
  Age: 75 Year
  Sex: Male

DRUGS (5)
  1. PLAVIX [Concomitant]
  2. BRILINTA [Suspect]
     Indication: ACUTE CORONARY SYNDROME
     Route: 048
     Dates: start: 20110901, end: 20110901
  3. BRILINTA [Suspect]
     Route: 048
     Dates: start: 20110101
  4. TICLID [Concomitant]
  5. EFFIENT [Concomitant]

REACTIONS (2)
  - OCULAR HYPERAEMIA [None]
  - WRONG TECHNIQUE IN DRUG USAGE PROCESS [None]
